FAERS Safety Report 7190367-6 (Version None)
Quarter: 2010Q4

REPORT INFORMATION
  Report Type: 
  Country: None (occurrence: None)
  Receive Date: 20101207
  Receipt Date: 20101202
  Transmission Date: 20110411
  Serious: Yes (Death)
  Sender: FDA-Public Use
  Company Number: 2010SP062774

PATIENT
  Sex: Male

DRUGS (5)
  1. TEMOZOLOMIDE [Suspect]
     Indication: GLIOBLASTOMA MULTIFORME
     Dosage: 75 MG/M2; QD; PO, 200 MG/M2;QD; PO
     Route: 048
  2. TEMSIROLIMUS [Suspect]
     Indication: GLIOBLASTOMA MULTIFORME
     Dosage: 75 MG; QW; IV
     Route: 042
  3. RADIATION THERAPY [Suspect]
     Indication: GLIOBLASTOMA MULTIFORME
  4. DEXAMETASONE [Concomitant]
  5. BACTRIM [Concomitant]

REACTIONS (3)
  - HAEMOPHILUS INFECTION [None]
  - PNEUMONIA [None]
  - SEPSIS [None]
